FAERS Safety Report 16655648 (Version 1)
Quarter: 2019Q3

REPORT INFORMATION
  Report Type: Spontaneous
  Country: CN (occurrence: CN)
  Receive Date: 20190801
  Receipt Date: 20190801
  Transmission Date: 20191004
  Serious: Yes (Other)
  Sender: FDA-Public Use
  Company Number: CN-SA-2019SA205614

PATIENT
  Age: 61 Year
  Sex: Male
  Weight: 58 kg

DRUGS (4)
  1. FLUOROURACIL. [Concomitant]
     Active Substance: FLUOROURACIL
     Dosage: 2400 MG/M^2 3.5 G 46H Q14D
     Route: 065
     Dates: start: 20190712, end: 20190712
  2. ELOXATIN [Suspect]
     Active Substance: OXALIPLATIN
     Dosage: 124 MG, QD (85 MG/M^2 124 MG D1)
     Route: 041
     Dates: start: 20190712, end: 20190712
  3. ELOXATIN [Suspect]
     Active Substance: OXALIPLATIN
     Indication: CHEMOTHERAPY
     Dosage: UNK UNK, UNK
     Route: 041
  4. FLUOROURACIL. [Concomitant]
     Active Substance: FLUOROURACIL
     Dosage: UNK UNK, UNK
     Route: 065

REACTIONS (1)
  - Anaphylactoid reaction [Recovered/Resolved]

NARRATIVE: CASE EVENT DATE: 20190712
